FAERS Safety Report 16099909 (Version 1)
Quarter: 2019Q1

REPORT INFORMATION
  Report Type: Report from Study
  Country: US (occurrence: US)
  Receive Date: 20190321
  Receipt Date: 20190321
  Transmission Date: 20190418
  Serious: Yes (Hospitalization, Other)
  Sender: FDA-Public Use
  Company Number: US-MALLINCKRODT-T201901198

PATIENT
  Age: 71 Year
  Sex: Female

DRUGS (2)
  1. REPOSITORY CORTICOTROPIN INJECTION [Suspect]
     Active Substance: CORTICOTROPIN
     Indication: PROTEINURIA
     Dosage: 80 UNITS
     Route: 058
     Dates: end: 201812
  2. REPOSITORY CORTICOTROPIN INJECTION [Suspect]
     Active Substance: CORTICOTROPIN
     Indication: FOCAL SEGMENTAL GLOMERULOSCLEROSIS
     Dosage: 80 UNITS / 1 ML 2 TIMES PER WEEK (WEDNESDAY/SATURDAY) AT NIGHT
     Route: 058
     Dates: start: 20170401

REACTIONS (14)
  - Drug ineffective [Not Recovered/Not Resolved]
  - Nerve compression [Unknown]
  - Gait disturbance [Unknown]
  - Depressed mood [Unknown]
  - Therapy cessation [Unknown]
  - Diabetes mellitus [Not Recovered/Not Resolved]
  - Memory impairment [Not Recovered/Not Resolved]
  - Neck pain [Unknown]
  - Asthenia [Not Recovered/Not Resolved]
  - Gout [Not Recovered/Not Resolved]
  - Blood pressure increased [Recovering/Resolving]
  - Musculoskeletal pain [Unknown]
  - Fall [Unknown]
  - Peripheral swelling [Not Recovered/Not Resolved]

NARRATIVE: CASE EVENT DATE: 20181113
